FAERS Safety Report 19495306 (Version 1)
Quarter: 2021Q3

REPORT INFORMATION
  Report Type: Spontaneous
  Country: US (occurrence: US)
  Receive Date: 20210706
  Receipt Date: 20210706
  Transmission Date: 20211014
  Serious: Yes (Other)
  Sender: FDA-Public Use
  Company Number: US-HIKMA PHARMACEUTICALS USA INC.-US-H14001-21-54834

PATIENT
  Age: 57 Year
  Sex: Female

DRUGS (2)
  1. METHYLPREDNISOLONE. [Suspect]
     Active Substance: METHYLPREDNISOLONE
     Indication: MONONEUROPATHY MULTIPLEX
  2. METHYLPREDNISOLONE. [Suspect]
     Active Substance: METHYLPREDNISOLONE
     Indication: CUTANEOUS VASCULITIS
     Dosage: PULSE DOSE METHYLPREDNISOLONE
     Route: 042

REACTIONS (1)
  - Lactic acidosis [Recovered/Resolved]
